FAERS Safety Report 8989881 (Version 2)
Quarter: 2013Q1

REPORT INFORMATION
  Report Type: Spontaneous
  Country: US (occurrence: US)
  Receive Date: 20121228
  Receipt Date: 20130130
  Transmission Date: 20140127
  Serious: Yes (Death, Congenital Anomaly)
  Sender: FDA-Public Use
  Company Number: US-GLAXOSMITHKLINE-A1006562A

PATIENT
  Age: 16 Year
  Sex: Female
  Weight: 42 kg

DRUGS (5)
  1. FLOLAN [Suspect]
     Indication: PRODUCT USED FOR UNKNOWN INDICATION
     Dosage: 60NGKM CONTINUOUS
     Route: 042
     Dates: start: 20030822, end: 20121220
  2. MILRINONE [Concomitant]
  3. BOSENTAN [Concomitant]
  4. SILDENAFIL [Concomitant]
  5. DIGOXIN [Concomitant]

REACTIONS (1)
  - Death [Fatal]
